FAERS Safety Report 6486069-1 (Version None)
Quarter: 2009Q4

REPORT INFORMATION
  Report Type: 
  Country: None (occurrence: None)
  Receive Date: 20091209
  Receipt Date: 20090802
  Transmission Date: 20100525
  Serious: No
  Sender: FDA-Public Use
  Company Number: US-AMGEN-KDL358464

PATIENT
  Sex: Female

DRUGS (2)
  1. ENBREL [Suspect]
     Indication: ANKYLOSING SPONDYLITIS
     Route: 058
     Dates: start: 20090727
  2. ENBREL [Suspect]
     Indication: MYASTHENIA GRAVIS

REACTIONS (4)
  - FURUNCLE [None]
  - HEADACHE [None]
  - RESPIRATORY TRACT CONGESTION [None]
  - RHINORRHOEA [None]
